FAERS Safety Report 9846454 (Version 1)
Quarter: 2014Q1

REPORT INFORMATION
  Report Type: Spontaneous
  Country: US (occurrence: None)
  Receive Date: 20140122
  Receipt Date: 20140122
  Transmission Date: 20141002
  Serious: Yes (Other)
  Sender: FDA-Public Use
  Company Number: A1057281A

PATIENT
  Age: 63 Year
  Sex: Male

DRUGS (5)
  1. CALCIUM CARBONATE [Suspect]
     Indication: GASTROOESOPHAGEAL REFLUX DISEASE
     Dates: start: 2013
  2. EXCEDRIN MIGRAINE [Suspect]
     Indication: PAIN
     Route: 048
     Dates: start: 2012, end: 20131227
  3. NEXIUM HP7 [Concomitant]
  4. BLOOD PRESSURE MEDICATION [Concomitant]
  5. ANTIHYPERCHOLESTEROLAEMIC [Concomitant]

REACTIONS (6)
  - Myocardial infarction [None]
  - Heart rate decreased [None]
  - Blood pressure decreased [None]
  - Pain [None]
  - Therapeutic response unexpected [None]
  - Drug administration error [None]
